FAERS Safety Report 6501925-3 (Version None)
Quarter: 2009Q4

REPORT INFORMATION
  Report Type: 
  Country: None (occurrence: None)
  Receive Date: 20091216
  Receipt Date: 20091202
  Transmission Date: 20100525
  Serious: Yes (Other)
  Sender: FDA-Public Use
  Company Number: IE-MYLANLABS-2009S1020720

PATIENT
  Age: 27 None
  Sex: Male

DRUGS (5)
  1. LEVOTHYROXINE SODIUM [Suspect]
     Indication: HYPOPITUITARISM
  2. HYDROCORTISONE [Concomitant]
     Indication: HYPOPITUITARISM
  3. SOMATROPIN [Concomitant]
     Indication: HYPOPITUITARISM
  4. TESTOSTERONE [Concomitant]
     Indication: HYPOPITUITARISM
  5. DESMOPRESSIN [Concomitant]
     Indication: HYPOPITUITARISM

REACTIONS (2)
  - HYPOKALAEMIA [None]
  - THYROTOXIC PERIODIC PARALYSIS [None]
